FAERS Safety Report 23644765 (Version 1)
Quarter: 2024Q1

REPORT INFORMATION
  Report Type: Spontaneous
  Country: GB (occurrence: GB)
  Receive Date: 20240318
  Receipt Date: 20240318
  Transmission Date: 20240410
  Serious: Yes (Hospitalization, Other)
  Sender: FDA-Public Use
  Company Number: None

PATIENT
  Age: 76 Year
  Sex: Male

DRUGS (21)
  1. OLANZAPINE [Suspect]
     Active Substance: OLANZAPINE
     Indication: Product used for unknown indication
     Dosage: 2.5 MILLIGRAM, QD (AT NIGHT)
     Route: 065
  2. ARIPIPRAZOLE [Suspect]
     Active Substance: ARIPIPRAZOLE
     Indication: Product used for unknown indication
     Dosage: 10 MILLIGRAM, QD (OD)
     Route: 065
  3. ARIPIPRAZOLE [Suspect]
     Active Substance: ARIPIPRAZOLE
     Dosage: 5 MILLIGRAM, QD (OD)
     Route: 065
     Dates: end: 20240228
  4. ANGITIL [Concomitant]
     Dosage: 90 MILLIGRAM, BID
     Route: 065
  5. KEMADRIN [Concomitant]
     Active Substance: PROCYCLIDINE HYDROCHLORIDE
     Dosage: 5 MILLIGRAM, UNK
     Route: 065
  6. LATANOPROST [Concomitant]
     Active Substance: LATANOPROST
     Dosage: 50 MICROGRAM, QD (ONE DROP TO BE USED AT NIGHT IN THE AFFECTED EYE)
     Route: 065
  7. COAL TAR\COCONUT OIL\SALICYLIC ACID [Concomitant]
     Active Substance: COAL TAR\COCONUT OIL\SALICYLIC ACID
     Dosage: UNK
     Route: 065
  8. ISOSORBIDE MONONITRATE [Concomitant]
     Active Substance: ISOSORBIDE MONONITRATE
     Dosage: 60 MILLIGRAM, AM
     Route: 065
  9. OMEPRAZOLE [Concomitant]
     Active Substance: OMEPRAZOLE
     Dosage: 20 MILLIGRAM,UNK
     Route: 065
  10. LORAZEPAM [Concomitant]
     Active Substance: LORAZEPAM
     Dosage: 500 MICROGRAM, PRN (ONE TABLET UP TO A MAXIMUM OF FIVE TIMES A DAY)
     Route: 065
  11. MEMANTINE [Concomitant]
     Active Substance: MEMANTINE
     Dosage: 20 MILLIGRAM, UNK
     Route: 065
  12. METFORMIN [Concomitant]
     Active Substance: METFORMIN HYDROCHLORIDE
     Dosage: TWO TABLETS IN MORNING 1 EVENING , NEED TO BE TAKEN WITHFOOD
     Route: 065
  13. FLUPENTIXOL [Concomitant]
     Active Substance: FLUPENTIXOL
     Dosage: 140 MILLIGRAM, UNK (NEXT DUE 21/02)
     Route: 065
     Dates: start: 20240124
  14. BISOPROLOL [Concomitant]
     Active Substance: BISOPROLOL\BISOPROLOL FUMARATE
     Dosage: 1.25 MILLIGRAM, UNK (STOPPED SINUS BRADY ON ELECTROCARDIOGRAM (ECG))
     Route: 065
  15. SERTRALINE [Concomitant]
     Active Substance: SERTRALINE HYDROCHLORIDE
     Dosage: 100 MILLIGRAM, UNK
     Route: 065
  16. NICORANDIL [Concomitant]
     Active Substance: NICORANDIL
     Dosage: 20 MILLIGRAM,UNK
     Route: 065
  17. RAMIPRIL [Concomitant]
     Active Substance: RAMIPRIL
     Dosage: 2.5 MILLIGRAM, UNK
     Route: 065
  18. APIXABAN [Concomitant]
     Active Substance: APIXABAN
     Dosage: 2.5 MILLIGRAM, UNK
     Route: 065
  19. FERROUS FUMARATE [Concomitant]
     Active Substance: FERROUS FUMARATE
     Dosage: 210 MILLIGRAM,UNK
     Route: 065
  20. ATORVASTATIN [Concomitant]
     Active Substance: ATORVASTATIN
     Dosage: 20 MILLIGRAM, QD (AT NIGHT)
     Route: 065
  21. NITROGLYCERIN [Concomitant]
     Active Substance: NITROGLYCERIN
     Dosage: 400 MICROGRAM,UNK (AS DIRECTED)
     Route: 065

REACTIONS (2)
  - Drug-induced liver injury [Unknown]
  - Liver function test abnormal [Unknown]

NARRATIVE: CASE EVENT DATE: 20240222
